FAERS Safety Report 14969426 (Version 1)
Quarter: 2018Q2

REPORT INFORMATION
  Report Type: Spontaneous
  Country: BR (occurrence: BR)
  Receive Date: 20180604
  Receipt Date: 20180604
  Transmission Date: 20180711
  Serious: Yes (Other)
  Sender: FDA-Public Use
  Company Number: BR-PFIZER INC-2018136858

PATIENT
  Sex: Female

DRUGS (2)
  1. PROVERA [Suspect]
     Active Substance: MEDROXYPROGESTERONE ACETATE
     Indication: HAEMORRHAGE
     Dosage: CONTINUOUSLY FOR 10 YEARS WHEREAS SE TAKES 2 PACKAGES AND SOME TABLETS MORE TO COMPLETE 30 OR 31 DAY
  2. PROVERA [Suspect]
     Active Substance: MEDROXYPROGESTERONE ACETATE
     Indication: PROPHYLAXIS

REACTIONS (2)
  - Product use issue [Unknown]
  - Renal failure [Unknown]
